FAERS Safety Report 10177920 (Version 1)
Quarter: 2014Q2

REPORT INFORMATION
  Report Type: Spontaneous
  Country: ES (occurrence: ES)
  Receive Date: 20140516
  Receipt Date: 20140516
  Transmission Date: 20141212
  Serious: Yes (Death, Other)
  Sender: FDA-Public Use
  Company Number: ES-ABBVIE-14P-144-1238467-00

PATIENT
  Sex: 0

DRUGS (6)
  1. RIBAVIRIN [Suspect]
     Indication: HEPATIC CIRRHOSIS
  2. RIBAVIRIN [Suspect]
     Indication: HEPATITIS C
  3. PEGINTERFERON ALFA-2A [Suspect]
     Indication: HEPATIC CIRRHOSIS
  4. PEGINTERFERON ALFA-2A [Suspect]
     Indication: HEPATITIS C
  5. TELAPREVIR [Suspect]
     Indication: HEPATIC CIRRHOSIS
  6. TELAPREVIR [Suspect]
     Indication: HEPATITIS C

REACTIONS (3)
  - Aplastic anaemia [Unknown]
  - Sepsis [Fatal]
  - Multi-organ failure [Fatal]
